FAERS Safety Report 4518301-5 (Version None)
Quarter: 2004Q4

REPORT INFORMATION
  Report Type: 
  Country: None (occurrence: None)
  Receive Date: 20041202
  Receipt Date: 20041130
  Transmission Date: 20050328
  Serious: Yes (Other)
  Sender: FDA-Public Use
  Company Number: 200414242BCC

PATIENT
  Age: 39 Year
  Sex: Female
  Weight: 68.9467 kg

DRUGS (3)
  1. ORIGINAL ALKA-SELTZER TABLETS [Suspect]
     Dosage: 650 MG, BID, ORAL
     Route: 048
     Dates: start: 20030301, end: 20040101
  2. ORIGINAL ALKA-SELTZER TABLETS [Suspect]
     Dosage: 650 MG, BID, ORAL
     Route: 048
     Dates: start: 20040801
  3. MULTIVITAMIN AND MINERAL SUPPLEMENT [Concomitant]

REACTIONS (2)
  - BLOOD IRON DECREASED [None]
  - DRUG DEPENDENCE [None]
